FAERS Safety Report 4332891-7 (Version None)
Quarter: 2004Q1

REPORT INFORMATION
  Report Type: 
  Country: None (occurrence: None)
  Receive Date: 20040330
  Receipt Date: 20040308
  Transmission Date: 20041129
  Serious: No
  Sender: FDA-Public Use
  Company Number: 2004UW04643

PATIENT
  Age: 89 Year
  Sex: Female
  Weight: 56.6996 kg

DRUGS (8)
  1. NOLVADEX [Suspect]
     Indication: BREAST CANCER
     Dosage: 20 MG QD PO
     Route: 048
     Dates: start: 19970411
  2. LEVSIN/SL [Concomitant]
  3. ZOLOFT [Concomitant]
  4. ADVAIR DISKUS 100/50 [Concomitant]
  5. ALLEGRA [Concomitant]
  6. CARBID [Concomitant]
  7. ASPIRIN [Concomitant]
  8. ZOCOR [Concomitant]

REACTIONS (3)
  - INJURY [None]
  - OSTEOPOROTIC FRACTURE [None]
  - SPINAL FRACTURE [None]
